FAERS Safety Report 7285392-0 (Version None)
Quarter: 2011Q1

REPORT INFORMATION
  Report Type: 
  Country: None (occurrence: None)
  Receive Date: 20110210
  Receipt Date: 20110131
  Transmission Date: 20110831
  Serious: Yes (Death)
  Sender: FDA-Public Use
  Company Number: CHPA2011US02089

PATIENT
  Age: 36 Year
  Sex: Female

DRUGS (6)
  1. LISINOPRIL [Suspect]
     Route: 048
  2. ESCITALOPRAM [Suspect]
     Route: 048
  3. DIPHENHYDRAMINE [Suspect]
     Route: 048
  4. COCAINE [Suspect]
     Route: 048
  5. DRUG THERAPY NOS [Suspect]
     Route: 048
  6. VENLAFAXINE [Suspect]
     Route: 048

REACTIONS (1)
  - COMPLETED SUICIDE [None]
